FAERS Safety Report 6127101-4 (Version None)
Quarter: 2009Q1

REPORT INFORMATION
  Report Type: 
  Country: None (occurrence: None)
  Receive Date: 20090320
  Receipt Date: 20090309
  Transmission Date: 20090719
  Serious: Yes (Other)
  Sender: FDA-Public Use
  Company Number: US-AMGEN-US286127

PATIENT
  Sex: Male
  Weight: 114 kg

DRUGS (14)
  1. ENBREL [Suspect]
     Indication: RHEUMATOID ARTHRITIS
     Route: 058
     Dates: start: 20061101
  2. LEFLUNOMIDE [Concomitant]
     Route: 065
  3. PREDNISONE [Concomitant]
     Route: 065
  4. WARFARIN SODIUM [Concomitant]
     Route: 065
  5. LEVOTHYROXINE [Concomitant]
     Route: 065
  6. TOPROL-XL [Concomitant]
     Route: 065
  7. PAXIL [Concomitant]
     Route: 065
  8. DILTIAZEM [Concomitant]
     Route: 065
  9. PACERONE (UPSHER-SMITH LAB) [Concomitant]
     Route: 065
  10. FUROSEMIDE [Concomitant]
     Route: 065
  11. ALLOPURINOL [Concomitant]
     Route: 065
  12. SPIRONOLACTONE [Concomitant]
     Route: 065
  13. GLUCOPHAGE [Concomitant]
     Route: 065
  14. ARAVA [Concomitant]

REACTIONS (7)
  - BACK PAIN [None]
  - INTERVERTEBRAL DISC PROTRUSION [None]
  - JOINT LOCK [None]
  - JOINT SWELLING [None]
  - MEDICAL DEVICE COMPLICATION [None]
  - RHEUMATOID ARTHRITIS [None]
  - SENSORY LOSS [None]
